FAERS Safety Report 23497102 (Version 1)
Quarter: 2024Q1

REPORT INFORMATION
  Report Type: Spontaneous
  Country: FR (occurrence: FR)
  Receive Date: 20240208
  Receipt Date: 20240208
  Transmission Date: 20240410
  Serious: Yes (Death, Other)
  Sender: FDA-Public Use
  Company Number: FR-JNJFOC-20221155551

PATIENT
  Age: 67 Year
  Sex: Male

DRUGS (3)
  1. DEXAMETHASONE [Suspect]
     Active Substance: DEXAMETHASONE
     Indication: Plasma cell myeloma
     Dosage: 3 WEEK(S)/CYCLE
     Route: 065
     Dates: end: 20210325
  2. LENALIDOMIDE [Suspect]
     Active Substance: LENALIDOMIDE
     Indication: Plasma cell myeloma
     Route: 065
     Dates: end: 20210325
  3. VELCADE [Suspect]
     Active Substance: BORTEZOMIB
     Indication: Plasma cell myeloma
     Dosage: 2 WEEK(S)/CYCLE
     Route: 065
     Dates: end: 20210325

REACTIONS (6)
  - Malnutrition [Fatal]
  - Eschar [Fatal]
  - Osteitis [Fatal]
  - Sepsis [Fatal]
  - Off label use [Unknown]
  - Intentional product use issue [Unknown]
